FAERS Safety Report 7988686-6 (Version None)
Quarter: 2011Q4

REPORT INFORMATION
  Report Type: 
  Country: None (occurrence: None)
  Receive Date: 20111218
  Receipt Date: 20111206
  Transmission Date: 20120403
  Serious: Yes (Hospitalization)
  Sender: FDA-Public Use
  Company Number: BE-ELI_LILLY_AND_COMPANY-BE201112001904

PATIENT
  Sex: Male

DRUGS (2)
  1. OLANZAPINE [Suspect]
     Dosage: 405 MG, EVERY THREE WEEKS
     Route: 030
  2. OLANZAPINE [Suspect]
     Dosage: 405 MG, UNKNOWN
     Route: 030
     Dates: start: 20111110

REACTIONS (3)
  - SEDATION [None]
  - OFF LABEL USE [None]
  - HAEMATEMESIS [None]
